FAERS Safety Report 11780707 (Version 3)
Quarter: 2015Q4

REPORT INFORMATION
  Report Type: Spontaneous
  Country: JP (occurrence: JP)
  Receive Date: 20151126
  Receipt Date: 20151209
  Transmission Date: 20160305
  Serious: Yes (Other)
  Sender: FDA-Public Use
  Company Number: JP-ROCHE-1666655

PATIENT
  Age: 35 Year
  Sex: Female

DRUGS (2)
  1. ACTILYSE [Suspect]
     Active Substance: ALTEPLASE
     Indication: CEREBELLAR INFARCTION
     Route: 042
  2. ACTILYSE [Suspect]
     Active Substance: ALTEPLASE
     Indication: BRAIN STEM INFARCTION

REACTIONS (6)
  - Cerebral artery embolism [Unknown]
  - Deep vein thrombosis [Recovered/Resolved]
  - Dilatation ventricular [Unknown]
  - Dilatation atrial [Unknown]
  - Pleural effusion [Unknown]
  - Maternal exposure during pregnancy [Unknown]
